FAERS Safety Report 5722255-3 (Version None)
Quarter: 2008Q2

REPORT INFORMATION
  Report Type: 
  Country: None (occurrence: None)
  Receive Date: 20080429
  Receipt Date: 20071017
  Transmission Date: 20081010
  Serious: No
  Sender: FDA-Public Use
  Company Number: US-ASTRAZENECA-2007UW24153

PATIENT
  Age: 83 Year
  Sex: Female
  Weight: 56.7 kg

DRUGS (2)
  1. NEXIUM [Suspect]
     Indication: GASTROOESOPHAGEAL REFLUX DISEASE
     Route: 048
     Dates: start: 20070401, end: 20070601
  2. NEXIUM [Suspect]
     Route: 048
     Dates: start: 20070601

REACTIONS (3)
  - COUGH [None]
  - DYSPHONIA [None]
  - WEIGHT DECREASED [None]
